FAERS Safety Report 8699213 (Version 2)
Quarter: 2013Q2

REPORT INFORMATION
  Report Type: Spontaneous
  Country: BR (occurrence: BR)
  Receive Date: 20120802
  Receipt Date: 20130415
  Transmission Date: 20140414
  Serious: Yes (Hospitalization, Other)
  Sender: FDA-Public Use
  Company Number: PHHY2012BR038895

PATIENT
  Sex: Male

DRUGS (10)
  1. DIOVAN [Suspect]
     Dosage: 320 MG, UNK
  2. FORASEQ [Suspect]
     Indication: ASTHMA
     Dosage: 2 DF, UNK
  3. ONBREZ [Suspect]
     Indication: CHRONIC OBSTRUCTIVE PULMONARY DISEASE
     Dosage: 150 UG, UNK
  4. IPRATROPIUM BROMIDE [Concomitant]
     Indication: ASTHMA
  5. ALBUTEROL [Concomitant]
     Indication: ASTHMA
  6. MONOCORDIL [Concomitant]
     Indication: CARDIAC DISORDER
     Dosage: 2 DF (5 MG), DAILY
  7. ALDACTONE [Concomitant]
     Indication: CARDIAC DISORDER
     Dosage: 1 DF (25 MG),DAILY
  8. CARVEDILOL [Concomitant]
     Indication: CARDIAC DISORDER
     Dosage: 2 DF (3.125 MG) DAILY
  9. SIMVASTATIN [Concomitant]
     Indication: BLOOD CHOLESTEROL
     Dosage: 1 DF (40 MG) DAILY
  10. AAS [Concomitant]
     Indication: BLOOD DISORDER
     Dosage: 1 DF DAILY

REACTIONS (3)
  - Pneumonia [Recovered/Resolved]
  - Blood pressure fluctuation [Recovering/Resolving]
  - Dizziness [Recovering/Resolving]
